FAERS Safety Report 4423262-3 (Version None)
Quarter: 2004Q3

REPORT INFORMATION
  Report Type: 
  Country: None (occurrence: None)
  Receive Date: 20040810
  Receipt Date: 20040810
  Transmission Date: 20050211
  Serious: Yes (Hospitalization)
  Sender: FDA-Public Use
  Company Number: None

PATIENT
  Age: 76 Year
  Sex: Female
  Weight: 74.09 kg

DRUGS (2)
  1. CLINDAMYCIN HCL [Suspect]
     Indication: PNEUMONIA
     Dosage: PO
     Route: 048
     Dates: end: 20040504
  2. ESTRADIOL [Concomitant]

REACTIONS (3)
  - BACTERIA STOOL IDENTIFIED [None]
  - CLOSTRIDIUM COLITIS [None]
  - HYPOALBUMINAEMIA [None]
